FAERS Safety Report 14527643 (Version 1)
Quarter: 2018Q1

REPORT INFORMATION
  Report Type: Spontaneous
  Country: US (occurrence: US)
  Receive Date: 20180213
  Receipt Date: 20180213
  Transmission Date: 20180509
  Serious: No
  Sender: FDA-Public Use
  Company Number: US-LEXICON PHARMACEUTICALS, INC-18-1606-00150

PATIENT
  Sex: Female

DRUGS (1)
  1. TELOTRISTAT ETHYL [Suspect]
     Active Substance: TELOTRISTAT ETHYL
     Indication: CARCINOID TUMOUR
     Route: 048
     Dates: start: 20170629

REACTIONS (14)
  - Protein total decreased [Unknown]
  - Body temperature decreased [Unknown]
  - Blood albumin decreased [Unknown]
  - Mean cell haemoglobin [Unknown]
  - Neutrophil count increased [Unknown]
  - Blood chromogranin A increased [Unknown]
  - Haematocrit decreased [Unknown]
  - Blood calcium decreased [Unknown]
  - Blood glucose increased [Unknown]
  - Creatinine renal clearance decreased [Unknown]
  - Mean cell volume abnormal [Unknown]
  - Blood chloride increased [Unknown]
  - Skin hyperpigmentation [Recovering/Resolving]
  - Red blood cell count decreased [Unknown]
